FAERS Safety Report 7013379-1 (Version None)
Quarter: 2010Q3

REPORT INFORMATION
  Report Type: 
  Country: None (occurrence: None)
  Receive Date: 20100924
  Receipt Date: 20100921
  Transmission Date: 20110219
  Serious: Yes (Hospitalization)
  Sender: FDA-Public Use
  Company Number: DE-SANOFI-AVENTIS-2010SA056561

PATIENT
  Age: 61 Year
  Sex: Female
  Weight: 66 kg

DRUGS (4)
  1. DOCETAXEL [Suspect]
     Indication: BREAST CANCER
     Route: 041
     Dates: start: 20100517, end: 20100517
  2. DOCETAXEL [Suspect]
     Route: 041
     Dates: start: 20100719, end: 20100719
  3. BEVACIZUMAB [Suspect]
     Indication: BREAST CANCER
     Route: 041
     Dates: start: 20100222, end: 20100222
  4. BEVACIZUMAB [Suspect]
     Route: 041
     Dates: start: 20100719, end: 20100719

REACTIONS (2)
  - FAT NECROSIS [None]
  - IMPAIRED HEALING [None]
